FAERS Safety Report 5715559-1 (Version None)
Quarter: 2008Q2

REPORT INFORMATION
  Report Type: 
  Country: None (occurrence: None)
  Receive Date: 20080422
  Receipt Date: 20080407
  Transmission Date: 20081010
  Serious: Yes (Other)
  Sender: FDA-Public Use
  Company Number: US-1165238

PATIENT
  Age: 64 Year
  Sex: Female

DRUGS (1)
  1. SYSTANE EYE DROPS [Suspect]
     Indication: DRY EYE
     Dosage: (OPHTHALMIC)
     Route: 047
     Dates: end: 20080209

REACTIONS (6)
  - ASTIGMATISM [None]
  - CONDITION AGGRAVATED [None]
  - CORNEAL ABRASION [None]
  - EYE PAIN [None]
  - LACRIMATION INCREASED [None]
  - PHOTOPHOBIA [None]
